FAERS Safety Report 9019097 (Version 1)
Quarter: 2013Q1

REPORT INFORMATION
  Report Type: Spontaneous
  Country: US (occurrence: US)
  Receive Date: 20130118
  Receipt Date: 20130118
  Transmission Date: 20140127
  Serious: No
  Sender: FDA-Public Use
  Company Number: US-PFIZER INC-2013021354

PATIENT
  Age: 58 Year
  Sex: Male

DRUGS (1)
  1. ADVIL [Suspect]
     Indication: MUSCULOSKELETAL DISCOMFORT
     Dosage: 1 TABLET, 2X/DAY
     Route: 048
     Dates: start: 20130115

REACTIONS (2)
  - Somnolence [Unknown]
  - Presyncope [Unknown]
